FAERS Safety Report 23991289 (Version 2)
Quarter: 2024Q3

REPORT INFORMATION
  Report Type: Spontaneous
  Country: US (occurrence: US)
  Receive Date: 20240619
  Receipt Date: 20240710
  Transmission Date: 20241016
  Serious: Yes (Death, Hospitalization, Other)
  Sender: TEVA
  Company Number: US-TEVA-VS-3208890

PATIENT
  Age: 44 Year
  Sex: Male

DRUGS (4)
  1. AUSTEDO [Suspect]
     Active Substance: DEUTETRABENAZINE
     Indication: Huntington^s disease
     Route: 065
     Dates: start: 20240522, end: 20240610
  2. SENOKOT [Concomitant]
     Active Substance: SENNOSIDES
  3. ZYPREXA [Concomitant]
     Active Substance: OLANZAPINE
  4. KLONOPIN [Concomitant]
     Active Substance: CLONAZEPAM

REACTIONS (3)
  - Death [Fatal]
  - Pneumonia aspiration [Unknown]
  - Hospice care [Unknown]
